FAERS Safety Report 13331122 (Version 2)
Quarter: 2017Q2

REPORT INFORMATION
  Report Type: Report from Study
  Country: FR (occurrence: FR)
  Receive Date: 20170314
  Receipt Date: 20170421
  Transmission Date: 20170830
  Serious: Yes (Life-Threatening, Hospitalization)
  Sender: FDA-Public Use
  Company Number: FR-AMGEN-FRACT2017038136

PATIENT
  Age: 57 Year
  Weight: 52.7 kg

DRUGS (5)
  1. CYCLOPHOSPHAMIDE. [Suspect]
     Active Substance: CYCLOPHOSPHAMIDE
     Indication: BREAST CANCER
     Dosage: 780 MG, UNK
     Route: 065
     Dates: start: 20110121
  2. FLUOROURACIL. [Suspect]
     Active Substance: FLUOROURACIL
     Indication: BREAST CANCER
     Dosage: 775 MG, UNK
     Route: 065
     Dates: start: 20110121
  3. PANITUMUMAB [Suspect]
     Active Substance: PANITUMUMAB
     Indication: BREAST CANCER
     Dosage: 490 MG, Q3WK
     Route: 042
     Dates: start: 20110121
  4. TAXOTERE [Suspect]
     Active Substance: DOCETAXEL
     Indication: BREAST CANCER
     Dosage: 160 MG, UNK
     Route: 065
     Dates: start: 20110415
  5. EPIRUBICIN [Suspect]
     Active Substance: EPIRUBICIN
     Indication: BREAST CANCER
     Dosage: 155 MG, UNK
     Route: 065
     Dates: start: 20110121

REACTIONS (1)
  - Febrile neutropenia [Recovered/Resolved]

NARRATIVE: CASE EVENT DATE: 20110421
